FAERS Safety Report 5849968-7 (Version None)
Quarter: 2008Q3

REPORT INFORMATION
  Report Type: 
  Country: None (occurrence: None)
  Receive Date: 20080815
  Receipt Date: 20080804
  Transmission Date: 20090109
  Serious: Yes (Hospitalization)
  Sender: FDA-Public Use
  Company Number: 2008AP001895

PATIENT
  Age: 51 Year
  Sex: Female

DRUGS (4)
  1. OXCARBAZEPINE TABLETS [Suspect]
     Indication: MANIA
     Dosage: 600 MG; BID; 300 MG; BID
  2. DIVALPROEX SODIUM [Suspect]
     Dosage: 1500 MG; BID; 1000 MG; BID
  3. CLONAZEPAM [Concomitant]
  4. METFORMIN HCL [Concomitant]

REACTIONS (11)
  - ACTIVITIES OF DAILY LIVING IMPAIRED [None]
  - ATAXIA [None]
  - CATATONIA [None]
  - CONFUSIONAL STATE [None]
  - DRUG INTERACTION [None]
  - INCONTINENCE [None]
  - OEDEMA PERIPHERAL [None]
  - PLATELET COUNT DECREASED [None]
  - SPEECH DISORDER [None]
  - THERAPEUTIC AGENT TOXICITY [None]
  - THOUGHT BLOCKING [None]
